FAERS Safety Report 11256694 (Version 1)
Quarter: 2015Q3

REPORT INFORMATION
  Report Type: Spontaneous
  Country: US (occurrence: US)
  Receive Date: 20150709
  Receipt Date: 20150709
  Transmission Date: 20151125
  Serious: No
  Sender: FDA-Public Use
  Company Number: US-PURDUE-USA-2014-0115476

PATIENT
  Sex: Female

DRUGS (1)
  1. BUTRANS [Suspect]
     Active Substance: BUPRENORPHINE
     Indication: PRODUCT USED FOR UNKNOWN INDICATION
     Dosage: 5 MCG/HR, WEEKLY
     Route: 062
     Dates: end: 20140627

REACTIONS (6)
  - Fluid retention [Unknown]
  - Swelling [Unknown]
  - Vomiting [Unknown]
  - Hypoaesthesia [Unknown]
  - Muscle spasms [Unknown]
  - Frequent bowel movements [Unknown]
